FAERS Safety Report 10167580 (Version 1)
Quarter: 2014Q2

REPORT INFORMATION
  Report Type: Spontaneous
  Country: US (occurrence: None)
  Receive Date: 20140508
  Receipt Date: 20140508
  Transmission Date: 20141212
  Serious: Yes (Other)
  Sender: FDA-Public Use
  Company Number: UTC-047962

PATIENT
  Age: 58 Year
  Sex: Male

DRUGS (9)
  1. TYVASO [Suspect]
     Indication: PULMONARY ARTERIAL HYPERTENSION
     Route: 055
     Dates: start: 20140312
  2. LETAIRIS (AMBRISENTAN) (TABLET) (AMBRISENTAN) [Suspect]
     Indication: PULMONARY ARTERIAL HYPERTENSION
     Dates: start: 20131205
  3. SOTALOL (SOTALOL) (UNKNOWN) [Concomitant]
  4. DIGOXIN (DIGOXIN) (UNKNOWN) (DIGOXIN) [Concomitant]
  5. WARFARIN (WARFARIN) (UNKNOWN) [Concomitant]
  6. PRAVASTATIN (PRAVASTATIN) (UNKNOWN) [Concomitant]
  7. LYRICA (PREGABALIN) [Concomitant]
  8. LANTUS (INSULIN GLARGINE) [Concomitant]
  9. NOVOLOG (INSULIN ASPART) [Concomitant]

REACTIONS (2)
  - Pulmonary arterial pressure abnormal [None]
  - Drug ineffective [None]
